FAERS Safety Report 7535353-9 (Version None)
Quarter: 2011Q2

REPORT INFORMATION
  Report Type: 
  Country: None (occurrence: None)
  Receive Date: 20110609
  Receipt Date: 20080310
  Transmission Date: 20111010
  Serious: Yes (Hospitalization)
  Sender: FDA-Public Use
  Company Number: PHFR2008GB01078

PATIENT
  Sex: Male

DRUGS (1)
  1. CLOZAPINE [Suspect]
     Indication: SCHIZOPHRENIA
     Route: 048
     Dates: start: 20011203

REACTIONS (4)
  - APHASIA [None]
  - ASTHMA [None]
  - BLOOD CULTURE POSITIVE [None]
  - DRUG HYPERSENSITIVITY [None]
